FAERS Safety Report 5848471-8 (Version None)
Quarter: 2008Q3

REPORT INFORMATION
  Report Type: 
  Country: None (occurrence: None)
  Receive Date: 20080818
  Receipt Date: 20080805
  Transmission Date: 20090109
  Serious: Yes (Hospitalization)
  Sender: FDA-Public Use
  Company Number: ES-ELI_LILLY_AND_COMPANY-ES200808000955

PATIENT
  Age: 87 Year
  Sex: Female

DRUGS (8)
  1. FORTEO [Suspect]
     Indication: OSTEOPOROSIS
     Dosage: 20 UG, UNK
     Route: 058
     Dates: start: 20080201
  2. PLANTABEN [Concomitant]
     Indication: CONSTIPATION
  3. LORAZEPAM [Concomitant]
  4. NOLOTIL [Concomitant]
     Indication: PAIN
  5. ACETAMINOPHEN [Concomitant]
     Indication: PAIN
  6. DURAGESIC-100 [Concomitant]
     Dosage: 25 MG, OTHER (EVERY THREE DAYS)
  7. ENALAPRIL [Concomitant]
     Indication: HYPERTENSION
     Dosage: 20 MG, UNK
  8. GABAPENTIN [Concomitant]
     Indication: PAIN

REACTIONS (3)
  - FALL [None]
  - HIP FRACTURE [None]
  - UPPER LIMB FRACTURE [None]
